FAERS Safety Report 8506913-3 (Version None)
Quarter: 2012Q3

REPORT INFORMATION
  Report Type: 
  Country: None (occurrence: None)
  Receive Date: 20120703
  Receipt Date: 20120627
  Transmission Date: 20120928
  Serious: Yes (Hospitalization)
  Sender: FDA-Public Use
  Company Number: 2012SP036307

PATIENT
  Sex: Male

DRUGS (5)
  1. CYMBALTA [Concomitant]
  2. LAMICTAL [Concomitant]
  3. LITHIUM CARBONATE [Concomitant]
  4. SAPHRIS [Suspect]
     Indication: BIPOLAR DISORDER
     Dosage: 10 MG;QPM;SL
     Route: 060
  5. DEPLIN [Concomitant]

REACTIONS (4)
  - FEELING ABNORMAL [None]
  - FEELING DRUNK [None]
  - RESTLESSNESS [None]
  - DYSSTASIA [None]
